FAERS Safety Report 22367456 (Version 2)
Quarter: 2023Q2

REPORT INFORMATION
  Report Type: Report from Study
  Country: GB (occurrence: GB)
  Receive Date: 20230525
  Receipt Date: 20230605
  Transmission Date: 20230721
  Serious: Yes (Other)
  Sender: FDA-Public Use
  Company Number: GB-002147023-NVSC2022GB093385

PATIENT
  Age: 36 Year
  Sex: Female

DRUGS (1)
  1. HYRIMOZ [Suspect]
     Active Substance: ADALIMUMAB-ADAZ
     Indication: Spinal osteoarthritis
     Dosage: 40 MG, Q2W, DELIVERY START DATE: 24 FEB 2022
     Route: 058
     Dates: start: 20220308

REACTIONS (8)
  - Spinal osteoarthritis [Unknown]
  - Injection site pain [Unknown]
  - Urinary tract infection [Unknown]
  - Injection site swelling [Unknown]
  - Contusion [Unknown]
  - Infection [Not Recovered/Not Resolved]
  - Incorrect dose administered [Unknown]
  - Accidental exposure to product [Unknown]
